FAERS Safety Report 21892535 (Version 1)
Quarter: 2023Q1

REPORT INFORMATION
  Report Type: Other
  Country: US (occurrence: US)
  Receive Date: 20230120
  Receipt Date: 20230120
  Transmission Date: 20230417
  Serious: Yes (Hospitalization)
  Sender: FDA-Public Use
  Company Number: US-MAYNE PHARMA-2023MYN000073

PATIENT

DRUGS (2)
  1. CLOZAPINE [Suspect]
     Active Substance: CLOZAPINE
     Indication: Product used for unknown indication
     Dosage: 150 MG, QD (EVERY MORNING)
     Route: 048
  2. CLOZAPINE [Suspect]
     Active Substance: CLOZAPINE
     Dosage: 200 MG, QD (EVERY NIGHT)
     Route: 048

REACTIONS (2)
  - Dyspnoea [Unknown]
  - Influenza like illness [Unknown]

NARRATIVE: CASE EVENT DATE: 20230109
